FAERS Safety Report 21761914 (Version 1)
Quarter: 2022Q4

REPORT INFORMATION
  Report Type: Spontaneous
  Country: US (occurrence: US)
  Receive Date: 20221221
  Receipt Date: 20221221
  Transmission Date: 20230112
  Serious: Yes (Other)
  Sender: FDA-Public Use
  Company Number: US-BoehringerIngelheim-2022-BI-208103

PATIENT
  Age: 68 Year
  Sex: Male

DRUGS (2)
  1. JARDIANCE [Suspect]
     Active Substance: EMPAGLIFLOZIN
     Indication: Product used for unknown indication
  2. ZYVOX [Suspect]
     Active Substance: LINEZOLID
     Indication: Staphylococcal osteomyelitis

REACTIONS (2)
  - Sepsis [Unknown]
  - Pancytopenia [Not Recovered/Not Resolved]
